FAERS Safety Report 7548292-4 (Version None)
Quarter: 2011Q2

REPORT INFORMATION
  Report Type: 
  Country: None (occurrence: None)
  Receive Date: 20110615
  Receipt Date: 20110607
  Transmission Date: 20111010
  Serious: Yes (Other)
  Sender: FDA-Public Use
  Company Number: US-PFIZER INC-2011082702

PATIENT
  Sex: Female

DRUGS (11)
  1. LISINOPRIL [Concomitant]
  2. NITROGLYCERIN [Concomitant]
     Dosage: PRN
  3. LOPRESSOR [Concomitant]
     Dosage: 100 MG, 2X/DAY
  4. PROMETHAZINE [Concomitant]
     Dosage: UNK
  5. ZETIA [Concomitant]
     Dosage: UNK
  6. TRAMADOL [Concomitant]
     Dosage: UNK
  7. GLUCOTROL [Concomitant]
     Dosage: 2.5 MG (FREQUENCY NOT PROVIDED)
  8. CEFADROXIL [Concomitant]
     Dosage: 500 MG, FREQUENCY NOT PROVIDED
  9. TORISEL [Suspect]
     Indication: METASTATIC RENAL CELL CARCINOMA
     Dosage: 25 MG, WEEKLY
     Route: 042
     Dates: start: 20110404
  10. CRESTOR [Concomitant]
  11. SYNTHROID [Concomitant]
     Dosage: 150 NG, FREQUENCY NOT PROVIDED

REACTIONS (4)
  - HERPES SIMPLEX [None]
  - SKIN LESION [None]
  - LIP DISORDER [None]
  - ULCER [None]
